FAERS Safety Report 7493413-5 (Version None)
Quarter: 2011Q2

REPORT INFORMATION
  Report Type: 
  Country: None (occurrence: None)
  Receive Date: 20110512
  Receipt Date: 20110510
  Transmission Date: 20111010
  Serious: Yes (Death)
  Sender: FDA-Public Use
  Company Number: 2011SP021198

PATIENT
  Age: 74 Year
  Sex: Male

DRUGS (5)
  1. DONEPEZIL HCL [Suspect]
     Indication: PRODUCT USED FOR UNKNOWN INDICATION
     Dosage: 5 MG
  2. LORAZEPAM [Suspect]
     Indication: PRODUCT USED FOR UNKNOWN INDICATION
  3. MIRTAZAPINE [Suspect]
     Indication: DEPRESSION
     Dosage: 60 MG,
  4. OLANZAPINE [Suspect]
     Indication: DEPRESSION
     Dosage: 5 MG
  5. QUETIAPINE FUMARATE [Suspect]
     Indication: PRODUCT USED FOR UNKNOWN INDICATION
     Dosage: 50 MG

REACTIONS (4)
  - HEADACHE [None]
  - CEREBRAL HAEMORRHAGE [None]
  - SOMNOLENCE [None]
  - CONFUSIONAL STATE [None]
